FAERS Safety Report 9120075 (Version 1)
Quarter: 2013Q1

REPORT INFORMATION
  Report Type: Spontaneous
  Country: US (occurrence: US)
  Receive Date: 20130226
  Receipt Date: 20130226
  Transmission Date: 20140127
  Serious: No
  Sender: FDA-Public Use
  Company Number: US-ASTRAZENECA-2013SE05401

PATIENT
  Age: 48 Year
  Sex: Female
  Weight: 127.5 kg

DRUGS (1)
  1. SYMBICORT  PMDI [Suspect]
     Indication: ASTHMA
     Dosage: 2 PUFFS, BID
     Route: 055
     Dates: start: 2009

REACTIONS (2)
  - Coeliac disease [Unknown]
  - Mouth ulceration [Unknown]
